FAERS Safety Report 6405463-8 (Version None)
Quarter: 2009Q4

REPORT INFORMATION
  Report Type: 
  Country: None (occurrence: None)
  Receive Date: 20091016
  Receipt Date: 20091016
  Transmission Date: 20100525
  Serious: Yes (Other)
  Sender: FDA-Public Use
  Company Number: None

PATIENT
  Age: 55 Year
  Sex: Female

DRUGS (2)
  1. SAVELLA [Suspect]
     Indication: FATIGUE
     Dosage: 2 WK TITRATION PACK AS PRESCRIBED ORAL CONSUMPTION
     Route: 048
     Dates: start: 20090911, end: 20090913
  2. SAVELLA [Suspect]
     Indication: FIBROMYALGIA
     Dosage: 2 WK TITRATION PACK AS PRESCRIBED ORAL CONSUMPTION
     Route: 048
     Dates: start: 20090911, end: 20090913

REACTIONS (8)
  - ARTHRITIS [None]
  - BONE PAIN [None]
  - CONDITION AGGRAVATED [None]
  - FIBROMYALGIA [None]
  - GAIT DISTURBANCE [None]
  - INSOMNIA [None]
  - NEUROPATHY PERIPHERAL [None]
  - PRODUCT LABEL ISSUE [None]
